FAERS Safety Report 23058311 (Version 1)
Quarter: 2023Q4

REPORT INFORMATION
  Report Type: Spontaneous
  Country: US (occurrence: None)
  Receive Date: 20231011
  Receipt Date: 20231011
  Transmission Date: 20240110
  Serious: Yes (Other)
  Sender: FDA-Public Use
  Company Number: None

PATIENT
  Age: 68 Year
  Sex: Female
  Weight: 78.75 kg

DRUGS (3)
  1. LOREAL PARIS REVITALIFT ANTI WRINKLE FIRMING MOISTURIZER SPF 25 [Suspect]
     Active Substance: AVOBENZONE\OCTISALATE\OCTOCRYLENE
     Indication: Dry skin prophylaxis
     Dates: start: 20231002, end: 20231002
  2. LISINOPRIL [Concomitant]
     Active Substance: LISINOPRIL
  3. ATORVASTATIN [Concomitant]
     Active Substance: ATORVASTATIN

REACTIONS (6)
  - Eye pain [None]
  - Lacrimation increased [None]
  - Ocular hyperaemia [None]
  - Photosensitivity reaction [None]
  - Ocular hyperaemia [None]
  - Dry eye [None]

NARRATIVE: CASE EVENT DATE: 20231011
